FAERS Safety Report 5273746-3 (Version None)
Quarter: 2007Q1

REPORT INFORMATION
  Report Type: 
  Country: None (occurrence: None)
  Receive Date: 20070323
  Receipt Date: 20070322
  Transmission Date: 20070707
  Serious: Yes (Other)
  Sender: FDA-Public Use
  Company Number: US-BRISTOL-MYERS SQUIBB COMPANY-13722145

PATIENT
  Age: 82 Year
  Sex: Female

DRUGS (1)
  1. AZACTAM [Suspect]
     Indication: URINARY TRACT INFECTION
     Route: 042
     Dates: start: 20070312

REACTIONS (1)
  - RENAL FAILURE ACUTE [None]
